FAERS Safety Report 23805698 (Version 4)
Quarter: 2024Q2

REPORT INFORMATION
  Report Type: Spontaneous
  Country: GB (occurrence: GB)
  Receive Date: 20240502
  Receipt Date: 20240524
  Transmission Date: 20240716
  Serious: Yes (Death)
  Sender: FDA-Public Use
  Company Number: None

PATIENT
  Age: 51 Year
  Sex: Male

DRUGS (8)
  1. OMEPRAZOLE [Suspect]
     Active Substance: DONEPEZIL HYDROCHLORIDE\OMEPRAZOLE\OMEPRAZOLE MAGNESIUM
     Route: 065
  2. SULBACTAM [Suspect]
     Active Substance: SULBACTAM
     Route: 042
  3. AMPICILLIN [Suspect]
     Active Substance: AMPICILLIN
     Route: 065
  4. ACETAMINOPHEN [Concomitant]
     Active Substance: ACETAMINOPHEN
  5. COTRIMOXAZOLE [Suspect]
     Active Substance: SULFAMETHOXAZOLE\TRIMETHOPRIM
     Route: 048
  6. CEFEPIME [Suspect]
     Active Substance: CEFEPIME HYDROCHLORIDE
     Route: 042
  7. METRONIDAZOLE [Suspect]
     Active Substance: METRONIDAZOLE
     Indication: Bacterial infection
     Route: 048
  8. SEMAGLUTIDE [Suspect]
     Active Substance: SEMAGLUTIDE
     Route: 065

REACTIONS (8)
  - Cardiac arrest [Fatal]
  - Nausea [Fatal]
  - Thrombosis [Fatal]
  - Chills [Fatal]
  - Abdominal pain [Fatal]
  - Abdominal distension [Fatal]
  - Hepatic lesion [Fatal]
  - Tachycardia [Fatal]
